FAERS Safety Report 5828824-4 (Version None)
Quarter: 2008Q3

REPORT INFORMATION
  Report Type: 
  Country: None (occurrence: None)
  Receive Date: 20080729
  Receipt Date: 20080729
  Transmission Date: 20090109
  Serious: Yes (Hospitalization)
  Sender: FDA-Public Use
  Company Number: None

PATIENT
  Age: 73 Year
  Sex: Male
  Weight: 72.6 kg

DRUGS (1)
  1. CISPLATIN [Suspect]
     Dosage: 23 MG IV
     Route: 042
     Dates: start: 20071217, end: 20071221

REACTIONS (3)
  - ADRENAL INSUFFICIENCY [None]
  - DEHYDRATION [None]
  - ILL-DEFINED DISORDER [None]
